FAERS Safety Report 7658059-4 (Version None)
Quarter: 2011Q3

REPORT INFORMATION
  Report Type: 
  Country: None (occurrence: None)
  Receive Date: 20110805
  Receipt Date: 20101215
  Transmission Date: 20111222
  Serious: No
  Sender: FDA-Public Use
  Company Number: US-BAYER-2010-001039

PATIENT
  Sex: Female

DRUGS (2)
  1. YAZ [Suspect]
     Indication: CONTRACEPTION
     Dosage: 3 MG/0.02 MG, PO
  2. DROSPIRENONE AND ETHINYL ESTRADIOL [Suspect]

REACTIONS (3)
  - NO ADVERSE EVENT [None]
  - AMENORRHOEA [None]
  - METRORRHAGIA [None]
